FAERS Safety Report 10540792 (Version 5)
Quarter: 2015Q3

REPORT INFORMATION
  Report Type: Spontaneous
  Country: BR (occurrence: BR)
  Receive Date: 20141024
  Receipt Date: 20150818
  Transmission Date: 20151125
  Serious: Yes (Life-Threatening, Hospitalization, Other)
  Sender: FDA-Public Use
  Company Number: BR-PFIZER INC-2014092429

PATIENT
  Age: 69 Year
  Sex: Male
  Weight: 72 kg

DRUGS (11)
  1. SUTENT [Suspect]
     Active Substance: SUNITINIB MALATE
     Dosage: 25 MG, CYCLE 4 X 2
     Route: 048
  2. SIMVASTATIN. [Concomitant]
     Active Substance: SIMVASTATIN
  3. SUTENT [Suspect]
     Active Substance: SUNITINIB MALATE
     Dosage: 37.5 MG, UNK
  4. METFORMIN [Concomitant]
     Active Substance: METFORMIN HYDROCHLORIDE
  5. CAPTOPRIL. [Concomitant]
     Active Substance: CAPTOPRIL
     Indication: HYPERTENSION
     Dosage: UNK
  6. HYDROCHLOROTHIAZIDE. [Concomitant]
     Active Substance: HYDROCHLOROTHIAZIDE
  7. LOSARTAN. [Concomitant]
     Active Substance: LOSARTAN
     Indication: HYPERTENSION
     Dosage: UNK
  8. OMEPRAZOLE. [Concomitant]
     Active Substance: OMEPRAZOLE
  9. SUTENT [Suspect]
     Active Substance: SUNITINIB MALATE
     Indication: METASTATIC RENAL CELL CARCINOMA
     Dosage: 50 MG (1 CAPSULE), CYCLIC; DAILY, 4 WEEKS ON/2 WEEKS OFF
     Route: 048
     Dates: start: 20140311
  10. GLICLAZIDE [Concomitant]
     Active Substance: GLICLAZIDE
     Indication: DIABETES MELLITUS
     Dosage: 1 UNSPECIFIED IF CAPSULE OR TABLET OF STRENGTH 30 MG, DAILY
     Route: 048
  11. ATENOLOL. [Concomitant]
     Active Substance: ATENOLOL

REACTIONS (17)
  - Dehydration [Recovered/Resolved]
  - Pallor [Unknown]
  - Disease progression [Unknown]
  - Eating disorder [Not Recovered/Not Resolved]
  - Asthenia [Not Recovered/Not Resolved]
  - Retching [Unknown]
  - Weight decreased [Not Recovered/Not Resolved]
  - Bacterial infection [Recovered/Resolved]
  - Yellow skin [Unknown]
  - Cardiac arrest [Recovered/Resolved]
  - Nausea [Unknown]
  - Metastatic renal cell carcinoma [Unknown]
  - Renal impairment [Unknown]
  - Vomiting [Unknown]
  - Diarrhoea [Unknown]
  - Gastric haemorrhage [Recovered/Resolved]
  - Pneumonia aspiration [Recovered/Resolved]

NARRATIVE: CASE EVENT DATE: 2014
